FAERS Safety Report 12632780 (Version 2)
Quarter: 2016Q3

REPORT INFORMATION
  Report Type: Spontaneous
  Country: US (occurrence: US)
  Receive Date: 20160808
  Receipt Date: 20160808
  Transmission Date: 20161109
  Serious: No
  Sender: FDA-Public Use
  Company Number: US-BEH-2015056930

PATIENT
  Sex: Female
  Weight: 33 kg

DRUGS (9)
  1. ALBUTEROL. [Concomitant]
     Active Substance: ALBUTEROL
  2. DIPHENHYDRAMINE. [Concomitant]
     Active Substance: DIPHENHYDRAMINE
  3. CEFDINIR. [Concomitant]
     Active Substance: CEFDINIR
  4. ADVAIR HFA [Concomitant]
     Active Substance: FLUTICASONE PROPIONATE\SALMETEROL XINAFOATE
  5. EPIPEN [Concomitant]
     Active Substance: EPINEPHRINE
  6. LMX [Concomitant]
     Active Substance: LIDOCAINE
  7. ACETAMINOPHEN. [Concomitant]
     Active Substance: ACETAMINOPHEN
  8. CEFUROXIME AXETIL. [Concomitant]
     Active Substance: CEFUROXIME AXETIL
  9. HIZENTRA [Suspect]
     Active Substance: HUMAN IMMUNOGLOBULIN G
     Indication: IMMUNODEFICIENCY COMMON VARIABLE
     Route: 058

REACTIONS (1)
  - Lymphadenopathy [Unknown]
